FAERS Safety Report 5106453-8 (Version None)
Quarter: 2006Q3

REPORT INFORMATION
  Report Type: 
  Country: None (occurrence: None)
  Receive Date: 20060918
  Receipt Date: 20060831
  Transmission Date: 20061208
  Serious: Yes (Hospitalization)
  Sender: FDA-Public Use
  Company Number: US-BAYER-200615493BWH

PATIENT
  Age: 66 Year
  Sex: Male

DRUGS (6)
  1. NEXAVAR [Suspect]
     Indication: METASTATIC RENAL CELL CARCINOMA
     Dosage: TOTAL DAILY DOSE: 800 MG  UNIT DOSE: 200 MG
     Route: 048
     Dates: start: 20060301, end: 20060731
  2. MULTIVITAMIN (NOS) [Concomitant]
  3. ASCORBIC ACID [Concomitant]
  4. HYDROCORTISONE [Concomitant]
  5. FLUDROCORTISONE [Concomitant]
  6. LORTAB [Concomitant]

REACTIONS (4)
  - ENTEROCOLITIS HAEMORRHAGIC [None]
  - FAECES DISCOLOURED [None]
  - HAEMOGLOBIN DECREASED [None]
  - LOWER GASTROINTESTINAL HAEMORRHAGE [None]
